FAERS Safety Report 23667578 (Version 1)
Quarter: 2024Q1

REPORT INFORMATION
  Report Type: Report from Study
  Country: CA (occurrence: CA)
  Receive Date: 20240325
  Receipt Date: 20240325
  Transmission Date: 20240410
  Serious: Yes (Other)
  Sender: FDA-Public Use
  Company Number: CA-JNJFOC-20240352799

PATIENT
  Age: 14 Year
  Sex: Male
  Weight: 53 kg

DRUGS (1)
  1. REMICADE [Suspect]
     Active Substance: INFLIXIMAB
     Indication: Colitis ulcerative
     Route: 041
     Dates: start: 20220409

REACTIONS (4)
  - Haematochezia [Not Recovered/Not Resolved]
  - Frequent bowel movements [Unknown]
  - General physical health deterioration [Unknown]
  - Abdominal pain [Unknown]

NARRATIVE: CASE EVENT DATE: 20240315
